FAERS Safety Report 7545720-5 (Version None)
Quarter: 2011Q2

REPORT INFORMATION
  Report Type: 
  Country: None (occurrence: None)
  Receive Date: 20110614
  Receipt Date: 20110607
  Transmission Date: 20111010
  Serious: Yes (Other)
  Sender: FDA-Public Use
  Company Number: US-AMGEN-USASP2011022850

PATIENT
  Age: 22 Year
  Sex: Female
  Weight: 83 kg

DRUGS (4)
  1. IVIGLOB-EX [Concomitant]
  2. RITUXAN [Concomitant]
  3. NPLATE [Suspect]
     Indication: IDIOPATHIC THROMBOCYTOPENIC PURPURA
     Dosage: 1 A?G, UNK
     Dates: start: 20100212, end: 20100227
  4. CORTICOSTEROIDS [Concomitant]

REACTIONS (2)
  - THROMBOCYTOPENIA [None]
  - DRUG INEFFECTIVE [None]
